FAERS Safety Report 9308272 (Version 3)
Quarter: 2013Q3

REPORT INFORMATION
  Report Type: Report from Study
  Country: US (occurrence: US)
  Receive Date: 20130524
  Receipt Date: 20130805
  Transmission Date: 20140515
  Serious: Yes (Other)
  Sender: FDA-Public Use
  Company Number: PHEH2013US011183

PATIENT
  Sex: Female

DRUGS (2)
  1. NEORAL [Suspect]
     Indication: SWELLING
  2. OMALIZUMAB [Concomitant]

REACTIONS (2)
  - Multiple sclerosis [Unknown]
  - Therapeutic response decreased [Unknown]
